FAERS Safety Report 7022679-0 (Version None)
Quarter: 2010Q3

REPORT INFORMATION
  Report Type: 
  Country: None (occurrence: None)
  Receive Date: 20100930
  Receipt Date: 20100927
  Transmission Date: 20110219
  Serious: Yes (Death, Hospitalization)
  Sender: FDA-Public Use
  Company Number: A0755447A

PATIENT
  Age: 40 Year
  Sex: Female
  Weight: 227.3 kg

DRUGS (17)
  1. AVANDIA [Suspect]
     Indication: TYPE 2 DIABETES MELLITUS
     Route: 048
     Dates: end: 20050801
  2. ATENOLOL [Concomitant]
  3. LOTENSIN [Concomitant]
  4. NPH INSULIN [Concomitant]
  5. GLIPIZIDE [Concomitant]
  6. GLUCOTROL [Concomitant]
  7. GLUCOPHAGE [Concomitant]
  8. SINGULAIR [Concomitant]
  9. NEURONTIN [Concomitant]
  10. FLOVENT [Concomitant]
  11. SEREVENT [Concomitant]
  12. VANCOMYCIN [Concomitant]
  13. HYDRALAZINE HCL [Concomitant]
  14. MORPHINE SULFATE [Concomitant]
  15. ALBUTEROL [Concomitant]
  16. ATROVENT [Concomitant]
  17. LOVENOX [Concomitant]

REACTIONS (10)
  - ARRHYTHMIA [None]
  - CARDIAC FAILURE CONGESTIVE [None]
  - CARDIO-RESPIRATORY ARREST [None]
  - DEATH [None]
  - MULTI-ORGAN FAILURE [None]
  - PICKWICKIAN SYNDROME [None]
  - PULMONARY FIBROSIS [None]
  - PULMONARY HYPERTENSION [None]
  - RESPIRATORY FAILURE [None]
  - TRANSIENT ISCHAEMIC ATTACK [None]
